FAERS Safety Report 8298693-4 (Version None)
Quarter: 2012Q2

REPORT INFORMATION
  Report Type: 
  Country: None (occurrence: None)
  Receive Date: 20120419
  Receipt Date: 20120412
  Transmission Date: 20120825
  Serious: Yes (Hospitalization)
  Sender: FDA-Public Use
  Company Number: JP-EISAI INC-E2090-02082-SPO-JP

PATIENT
  Age: 50 Year
  Sex: Male

DRUGS (6)
  1. FENTANYL [Concomitant]
  2. PENICILLIN G [Concomitant]
     Indication: TETANUS
  3. DEPAKENE [Concomitant]
     Route: 048
     Dates: start: 20120410
  4. DEPAKENE [Concomitant]
     Route: 048
     Dates: end: 20120322
  5. MIDAZOLAM HCL [Concomitant]
  6. ZONISAMIDE [Suspect]
     Dosage: UNKNOWN
     Route: 048
     Dates: start: 20120322, end: 20120410

REACTIONS (4)
  - NEUROLEPTIC MALIGNANT SYNDROME [None]
  - MYOTONIA [None]
  - BRADYKINESIA [None]
  - APATHY [None]
